FAERS Safety Report 4645563-6 (Version None)
Quarter: 2005Q2

REPORT INFORMATION
  Report Type: 
  Country: None (occurrence: None)
  Receive Date: 20050425
  Receipt Date: 20050419
  Transmission Date: 20051028
  Serious: Yes (Hospitalization, Other)
  Sender: FDA-Public Use
  Company Number: 2005037232

PATIENT
  Age: 67 Year
  Sex: Female

DRUGS (6)
  1. LIPITOR [Suspect]
     Indication: HYPERLIPIDAEMIA
     Dosage: 10 MG (1 IN 1 D), ORAL
     Route: 048
     Dates: start: 20041208, end: 20050128
  2. ORGAN LYSATE, STANDARDIZED (ORGAN LYSATE, STANDARDIZED) [Concomitant]
  3. BETAHISTINE MESILATE (BETAHISTINE MESILATE) [Concomitant]
  4. REBAMIPIDE (REBAMIPIDE) [Concomitant]
  5. SODIUM BICARBONATE IN PLASTIC CONTAINER [Concomitant]
  6. ZOLPIDEM TARTRATE [Concomitant]

REACTIONS (2)
  - GALLBLADDER POLYP [None]
  - HEPATIC FUNCTION ABNORMAL [None]
